FAERS Safety Report 4788375-5 (Version None)
Quarter: 2005Q4

REPORT INFORMATION
  Report Type: 
  Country: None (occurrence: None)
  Receive Date: 20051005
  Receipt Date: 20050714
  Transmission Date: 20060501
  Serious: Yes (Hospitalization)
  Sender: FDA-Public Use
  Company Number: BE-ABBOTT-05P-013-0306001-00

PATIENT
  Sex: Female

DRUGS (5)
  1. ZEMPLAR [Suspect]
     Indication: DRUG USE FOR UNKNOWN INDICATION
     Dosage: NOT REPORTED
     Route: 042
     Dates: start: 20050711
  2. ISONIAZID [Concomitant]
     Indication: PULMONARY OEDEMA
     Dosage: 2 MG/HR
     Dates: start: 20050713, end: 20050715
  3. ASPIRIN [Concomitant]
     Indication: PULMONARY OEDEMA
     Dates: start: 20050713
  4. AMOXICILLIN AND CLAVULANATE POTASSIUM [Concomitant]
     Indication: PULMONARY OEDEMA
     Dates: start: 20050713, end: 20050719
  5. AMOXICILLIN AND CLAVULANATE POTASSIUM [Concomitant]
     Indication: PNEUMONIA

REACTIONS (5)
  - ANGINA PECTORIS [None]
  - CHEST PAIN [None]
  - DYSPNOEA EXACERBATED [None]
  - PNEUMONIA [None]
  - PULMONARY OEDEMA [None]
